FAERS Safety Report 10239612 (Version 1)
Quarter: 2014Q2

REPORT INFORMATION
  Report Type: Not Available
  Country: GB (occurrence: GB)
  Receive Date: 20140616
  Receipt Date: 20140616
  Transmission Date: 20141212
  Serious: Yes (Other)
  Sender: FDA-Public Use
  Company Number: GB-MUNDIPHARMA DS AND PHARMACOVIGILANCE-GBR-2014-0018723

PATIENT
  Sex: Female

DRUGS (1)
  1. BUPRENORPHINE [Suspect]
     Indication: PAIN
     Dosage: 1 DF, WEEKLY
     Route: 062

REACTIONS (2)
  - Wrong technique in drug usage process [Unknown]
  - Skin burning sensation [Recovered/Resolved]
